FAERS Safety Report 13953574 (Version 8)
Quarter: 2021Q1

REPORT INFORMATION
  Report Type: Spontaneous
  Country: US (occurrence: US)
  Receive Date: 20170911
  Receipt Date: 20210125
  Transmission Date: 20210419
  Serious: Yes (Other)
  Sender: FDA-Public Use
  Company Number: US-PFIZER INC-2017388183

PATIENT
  Age: 74 Year
  Sex: Female
  Weight: 65 kg

DRUGS (3)
  1. ESTRING [Suspect]
     Active Substance: ESTRADIOL
     Indication: VULVOVAGINAL DISCOMFORT
     Dosage: 2 MG, EVERY 3 MONTHS [1 RING VAGINALLY EVERY 3 MONTHS 90 DAYS]
     Route: 067
  2. ESTRING [Suspect]
     Active Substance: ESTRADIOL
     Indication: VULVOVAGINAL DRYNESS
     Dosage: 2 MG, UNK
  3. ESTRING [Suspect]
     Active Substance: ESTRADIOL
     Indication: DYSPAREUNIA

REACTIONS (13)
  - Wrong technique in product usage process [Unknown]
  - Head injury [Unknown]
  - Dysphagia [Unknown]
  - Haematoma [Unknown]
  - Sciatica [Unknown]
  - Illness [Unknown]
  - Ligament sprain [Unknown]
  - Concussion [Unknown]
  - Fall [Unknown]
  - Eosinophil count abnormal [Unknown]
  - Memory impairment [Unknown]
  - Tremor [Unknown]
  - Foot fracture [Unknown]

NARRATIVE: CASE EVENT DATE: 2017
